FAERS Safety Report 6430418-7 (Version None)
Quarter: 2009Q4

REPORT INFORMATION
  Report Type: 
  Country: None (occurrence: None)
  Receive Date: 20091104
  Receipt Date: 20091026
  Transmission Date: 20100525
  Serious: Yes (Death, Hospitalization)
  Sender: FDA-Public Use
  Company Number: 89928

PATIENT
  Age: 20 Month
  Sex: Female
  Weight: 12 kg

DRUGS (2)
  1. ETOMIDATE [Suspect]
     Indication: ENDOTRACHEAL INTUBATION
     Dosage: 0.3MG/KG/IV
     Route: 042
     Dates: start: 20091011
  2. ETOMIDATE [Suspect]
     Indication: SEDATION
     Dosage: 0.3MG/KG/IV
     Route: 042
     Dates: start: 20091011

REACTIONS (3)
  - CARDIO-RESPIRATORY ARREST [None]
  - CONTRAINDICATION TO MEDICAL TREATMENT [None]
  - MEDICATION ERROR [None]
